FAERS Safety Report 10874188 (Version 4)
Quarter: 2015Q3

REPORT INFORMATION
  Report Type: Report from Study
  Country: JP (occurrence: JP)
  Receive Date: 20150227
  Receipt Date: 20150903
  Transmission Date: 20151125
  Serious: Yes (Death, Hospitalization)
  Sender: FDA-Public Use
  Company Number: PHJP2015JP002250

PATIENT
  Age: 65 Year
  Sex: Male
  Weight: 44 kg

DRUGS (5)
  1. NEORAL [Suspect]
     Active Substance: CYCLOSPORINE
     Dosage: 100 MG, QD
     Route: 048
     Dates: start: 20090512, end: 20090608
  2. EXJADE [Suspect]
     Active Substance: DEFERASIROX
     Indication: APLASIA PURE RED CELL
     Dosage: 1000 MG, QD
     Route: 048
     Dates: start: 20081218, end: 20091226
  3. NEORAL [Suspect]
     Active Substance: CYCLOSPORINE
     Dosage: 150 MG, QD
     Route: 048
     Dates: start: 20090609
  4. NEORAL [Suspect]
     Active Substance: CYCLOSPORINE
     Indication: APLASIA PURE RED CELL
     Dosage: 50 MG, QD
     Route: 048
     Dates: start: 20081218, end: 20090511
  5. QVAR [Concomitant]
     Active Substance: BECLOMETHASONE DIPROPIONATE
     Indication: ASTHMA
     Dosage: 200 UG, UNK
     Route: 055
     Dates: start: 20081218

REACTIONS (9)
  - Infection [Fatal]
  - Agranulocytosis [Fatal]
  - Pancytopenia [Fatal]
  - Pneumonia [Fatal]
  - Pyrexia [Fatal]
  - Renal failure [Fatal]
  - Sepsis [Fatal]
  - Dehydration [Fatal]
  - Urine output decreased [Fatal]

NARRATIVE: CASE EVENT DATE: 20091226
